FAERS Safety Report 24363307 (Version 1)
Quarter: 2024Q3

REPORT INFORMATION
  Report Type: Spontaneous
  Country: CA (occurrence: CA)
  Receive Date: 20240925
  Receipt Date: 20240925
  Transmission Date: 20241017
  Serious: Yes (Other)
  Sender: ROCHE
  Company Number: CA-ROCHE-10000086753

PATIENT
  Sex: Female

DRUGS (1)
  1. SOMATROPIN [Suspect]
     Active Substance: SOMATROPIN
     Indication: Product used for unknown indication
     Dosage: INJECTION
     Route: 065

REACTIONS (2)
  - Muscle disorder [Unknown]
  - Road traffic accident [Unknown]
